FAERS Safety Report 7224600-9 (Version None)
Quarter: 2011Q1

REPORT INFORMATION
  Report Type: 
  Country: None (occurrence: None)
  Receive Date: 20110106
  Receipt Date: 20110106
  Transmission Date: 20110831
  Serious: Yes (Hospitalization)
  Sender: FDA-Public Use
  Company Number: None

PATIENT
  Age: 56 Year
  Sex: Female
  Weight: 76.4 kg

DRUGS (6)
  1. ASPIRIN [Concomitant]
  2. ACTOS [Concomitant]
  3. METFORMIN [Concomitant]
  4. LISINOPRIL AND HYDROCHLOROTHIAZIDE [Suspect]
     Indication: HYPERTENSION
     Dosage: DAILY PO CHRONIC
     Route: 048
  5. FLONASE [Concomitant]
  6. LIPITOR [Concomitant]

REACTIONS (6)
  - RENAL FAILURE ACUTE [None]
  - DYSPNOEA [None]
  - UPPER RESPIRATORY TRACT CONGESTION [None]
  - PRURITUS [None]
  - ANGIOEDEMA [None]
  - BURNING SENSATION [None]
